FAERS Safety Report 15081259 (Version 1)
Quarter: 2018Q2

REPORT INFORMATION
  Report Type: Spontaneous
  Country: US (occurrence: US)
  Receive Date: 20180628
  Receipt Date: 20180628
  Transmission Date: 20180711
  Serious: No
  Sender: FDA-Public Use
  Company Number: US-ACCORD-062818

PATIENT
  Age: 62 Year
  Sex: Male
  Weight: 92.99 kg

DRUGS (1)
  1. CLONAZEPAM ACCORD [Suspect]
     Active Substance: CLONAZEPAM
     Indication: ANXIETY
     Dosage: CLONAZEPAM 0.5 MG UP TO 4 TIMES DAILY
     Route: 048
     Dates: start: 20171204, end: 20180108

REACTIONS (2)
  - Product substitution issue [Unknown]
  - Drug ineffective [Unknown]
